FAERS Safety Report 7789452-7 (Version None)
Quarter: 2011Q3

REPORT INFORMATION
  Report Type: 
  Country: None (occurrence: None)
  Receive Date: 20110930
  Receipt Date: 20110924
  Transmission Date: 20111222
  Serious: Yes (Death, Hospitalization)
  Sender: FDA-Public Use
  Company Number: AT-ACTELION-A-CH2011-51120

PATIENT
  Sex: Male

DRUGS (3)
  1. OXYGEN [Concomitant]
  2. TRACLEER [Suspect]
     Indication: PULMONARY ARTERIAL HYPERTENSION
     Dosage: 125 MG, BID
     Route: 048
  3. AZATHIOPRINE [Concomitant]

REACTIONS (9)
  - TRANSFUSION [None]
  - PULMONARY ARTERIAL PRESSURE INCREASED [None]
  - CARDIOPULMONARY FAILURE [None]
  - DYSPNOEA [None]
  - CARDIAC FAILURE [None]
  - ANAEMIA [None]
  - GENERAL PHYSICAL HEALTH DETERIORATION [None]
  - LUNG INFILTRATION [None]
  - ASTHENIA [None]
